FAERS Safety Report 7016433-3 (Version None)
Quarter: 2010Q3

REPORT INFORMATION
  Report Type: 
  Country: None (occurrence: None)
  Receive Date: 20100927
  Receipt Date: 20100921
  Transmission Date: 20110219
  Serious: Yes (Other)
  Sender: FDA-Public Use
  Company Number: B0675353A

PATIENT
  Age: 28 Year
  Sex: Male

DRUGS (2)
  1. NIQUITIN [Suspect]
     Indication: SMOKING CESSATION THERAPY
     Route: 062
     Dates: start: 20100822, end: 20100902
  2. IBUPROFEN [Concomitant]
     Route: 048

REACTIONS (3)
  - HYPOAESTHESIA FACIAL [None]
  - INFECTION [None]
  - SWELLING FACE [None]
